FAERS Safety Report 5908762-9 (Version None)
Quarter: 2008Q4

REPORT INFORMATION
  Report Type: 
  Country: None (occurrence: None)
  Receive Date: 20081006
  Receipt Date: 20080924
  Transmission Date: 20090506
  Serious: Yes (Other)
  Sender: FDA-Public Use
  Company Number: PHBS2008US05838

PATIENT
  Age: 9 Year

DRUGS (1)
  1. BACLOFEN [Suspect]
     Route: 037

REACTIONS (3)
  - CONDITION AGGRAVATED [None]
  - SCOLIOSIS [None]
  - SURGERY [None]
